FAERS Safety Report 24593539 (Version 1)
Quarter: 2024Q4

REPORT INFORMATION
  Report Type: Spontaneous
  Country: CZ (occurrence: CZ)
  Receive Date: 20241108
  Receipt Date: 20241108
  Transmission Date: 20250115
  Serious: Yes (Other)
  Sender: CELLTRION
  Company Number: CZ-CELLTRION INC.-2024CZ027444

PATIENT

DRUGS (2)
  1. TRASTUZUMAB [Suspect]
     Active Substance: TRASTUZUMAB
     Indication: Gallbladder cancer
     Dosage: COMBINATION OF TRASTUZUMAB AND TUCATINIB
     Dates: start: 202312
  2. TUCATINIB [Suspect]
     Active Substance: TUCATINIB
     Indication: Gallbladder cancer
     Dosage: COMBINATION OF TRASTUZUMAB AND TUCATINIB
     Dates: start: 202312

REACTIONS (2)
  - Autoimmune hypothyroidism [Unknown]
  - Intentional product use issue [Unknown]
